FAERS Safety Report 12405876 (Version 2)
Quarter: 2016Q4

REPORT INFORMATION
  Report Type: Report from Study
  Country: JP (occurrence: JP)
  Receive Date: 20160526
  Receipt Date: 20161104
  Transmission Date: 20170207
  Serious: No
  Sender: FDA-Public Use
  Company Number: JP-ALXN-A201503504AA

PATIENT
  Age: 26 Year
  Sex: Female
  Weight: 50 kg

DRUGS (11)
  1. CARVEDILOL. [Concomitant]
     Active Substance: CARVEDILOL
     Indication: HYPERTENSION
     Dosage: 2.5 MG, BID
     Route: 048
     Dates: start: 20150702
  2. SOLIRIS [Suspect]
     Active Substance: ECULIZUMAB
     Dosage: 1200 MG, Q2W
     Route: 042
     Dates: start: 20150909
  3. RABEPRAZOLE [Concomitant]
     Active Substance: RABEPRAZOLE
     Indication: PROPHYLAXIS
     Dosage: 10 MG, QD
     Route: 048
     Dates: start: 20150716
  4. PLETAAL [Concomitant]
     Active Substance: CILOSTAZOL
     Dosage: UNK
     Route: 048
  5. CANDESARTAN [Concomitant]
     Active Substance: CANDESARTAN
     Indication: HYPERTENSION
     Dosage: 4 MG, QD
     Route: 048
     Dates: start: 20150805
  6. CEFTRIAXONE. [Concomitant]
     Active Substance: CEFTRIAXONE
     Indication: INFECTION PROPHYLAXIS
     Dosage: 1 G, QD
     Route: 065
     Dates: start: 20150812, end: 20150901
  7. NIFEDIPINE. [Concomitant]
     Active Substance: NIFEDIPINE
     Indication: HYPERTENSION
     Dosage: 40 MG, QD
     Route: 048
     Dates: start: 20150609, end: 20150804
  8. OLMETEC [Concomitant]
     Active Substance: OLMESARTAN MEDOXOMIL
     Indication: HYPERTENSION
     Dosage: 20 MG, QD
     Route: 048
     Dates: start: 20150622, end: 20150804
  9. VASOLAN                            /00014302/ [Concomitant]
     Active Substance: VERAPAMIL HYDROCHLORIDE
     Indication: HYPERTENSION
     Dosage: 40 MG, TID
     Route: 048
     Dates: start: 20150806
  10. SOLIRIS [Suspect]
     Active Substance: ECULIZUMAB
     Indication: HAEMOLYTIC URAEMIC SYNDROME
     Dosage: 900 MG, QW
     Route: 042
     Dates: start: 20150812, end: 20150902
  11. PLETAAL [Concomitant]
     Active Substance: CILOSTAZOL
     Indication: REVERSIBLE CEREBRAL VASOCONSTRICTION SYNDROME
     Dosage: 100 MG, BID
     Route: 048
     Dates: start: 20150806

REACTIONS (1)
  - Blister [Recovered/Resolved]

NARRATIVE: CASE EVENT DATE: 20150909
